FAERS Safety Report 15946970 (Version 1)
Quarter: 2019Q1

REPORT INFORMATION
  Report Type: Spontaneous
  Country: JP (occurrence: JP)
  Receive Date: 20190212
  Receipt Date: 20190212
  Transmission Date: 20190417
  Serious: Yes (Hospitalization)
  Sender: FDA-Public Use
  Company Number: JP-EDENBRIDGE PHARMACEUTICALS, LLC-JP-2019EDE000018

PATIENT

DRUGS (2)
  1. PREDNISOLONE SODIUM PHOSPHATE. [Suspect]
     Active Substance: PREDNISOLONE SODIUM PHOSPHATE
     Indication: GLOMERULONEPHRITIS MINIMAL LESION
     Dosage: 0.8-1.0 MG/KG, QD
  2. PREDNISOLONE SODIUM PHOSPHATE. [Suspect]
     Active Substance: PREDNISOLONE SODIUM PHOSPHATE
     Dosage: 0.5-0.6 MG/KG/ALTERNATE DAY (TWO-THIRDS OF THE INITIAL DOSAGE)

REACTIONS (1)
  - Infection [Unknown]
